FAERS Safety Report 9492854 (Version 2)
Quarter: 2013Q3

REPORT INFORMATION
  Report Type: Report from Study
  Country: JP (occurrence: JP)
  Receive Date: 20130831
  Receipt Date: 20130926
  Transmission Date: 20140515
  Serious: Yes (Death)
  Sender: FDA-Public Use
  Company Number: JP-UCBSA-096055

PATIENT
  Age: 84 Year
  Sex: Male
  Weight: 57 kg

DRUGS (4)
  1. E KEPPRA [Suspect]
     Indication: PARTIAL SEIZURES WITH SECONDARY GENERALISATION
     Route: 048
     Dates: start: 20130401, end: 20130422
  2. VANCOMYCIN [Suspect]
     Dosage: DAILY DOSE: 1 G
     Route: 042
     Dates: start: 20130405, end: 20130410
  3. DEPAKENE [Concomitant]
     Dosage: DAILY DOSE: 4000 MG
     Route: 048
     Dates: start: 20130401, end: 20130422
  4. PHENOBAL [Concomitant]
     Dosage: DAILY DOSE: 200 MG
     Route: 030
     Dates: start: 20130401

REACTIONS (1)
  - Renal failure acute [Fatal]
